FAERS Safety Report 10165520 (Version 1)
Quarter: 2014Q2

REPORT INFORMATION
  Report Type: Spontaneous
  Country: US (occurrence: US)
  Receive Date: 20140510
  Receipt Date: 20140510
  Transmission Date: 20141212
  Serious: No
  Sender: FDA-Public Use
  Company Number: US-BRISTOL-MYERS SQUIBB COMPANY-19846450

PATIENT
  Age: 69 Year
  Sex: Male
  Weight: 107.03 kg

DRUGS (3)
  1. BYDUREON [Suspect]
     Route: 058
     Dates: start: 20130903
  2. SYMLIN [Concomitant]
  3. NOVOLOG [Concomitant]
     Dosage: NOVOLOG MIX 70/30

REACTIONS (3)
  - Injection site abscess [Unknown]
  - Injection site cellulitis [Unknown]
  - Blood creatinine increased [Unknown]
